FAERS Safety Report 9746608 (Version 1)
Quarter: 2013Q4

REPORT INFORMATION
  Report Type: Spontaneous
  Country: US (occurrence: US)
  Receive Date: 20131211
  Receipt Date: 20131211
  Transmission Date: 20140711
  Serious: Yes (Other)
  Sender: FDA-Public Use
  Company Number: US-PFIZER INC-2013354391

PATIENT
  Age: 63 Year
  Sex: Female
  Weight: 63.49 kg

DRUGS (6)
  1. LYRICA [Suspect]
     Indication: FIBROMYALGIA
     Dosage: 75 MG, 2X/DAY
     Route: 048
  2. LYRICA [Suspect]
     Indication: POST POLIO SYNDROME
  3. OXYCODONE [Concomitant]
     Dosage: UNK
  4. KLONOPIN [Concomitant]
     Dosage: UNK
  5. CALCIUM [Concomitant]
     Indication: OSTEOPOROSIS
     Dosage: UNK
  6. CYMBALTA [Concomitant]
     Dosage: UNK

REACTIONS (2)
  - Off label use [Unknown]
  - Musculoskeletal discomfort [Unknown]
